FAERS Safety Report 6243392-3 (Version None)
Quarter: 2009Q2

REPORT INFORMATION
  Report Type: 
  Country: None (occurrence: None)
  Receive Date: 20090622
  Receipt Date: 20090608
  Transmission Date: 20091009
  Serious: Yes (Other)
  Sender: FDA-Public Use
  Company Number: 20090222 /

PATIENT
  Age: 60 Year
  Sex: Male

DRUGS (1)
  1. METHYLENE BLUE INJECTION (METHYLENE BLUE) [Suspect]
     Dosage: 0.1 ML

REACTIONS (4)
  - ENDOPHTHALMITIS [None]
  - RETINAL DETACHMENT [None]
  - RETINAL TEAR [None]
  - WRONG DRUG ADMINISTERED [None]
